FAERS Safety Report 4738247-7 (Version None)
Quarter: 2005Q3

REPORT INFORMATION
  Report Type: 
  Country: None (occurrence: None)
  Receive Date: 20050808
  Receipt Date: 20050808
  Transmission Date: 20060218
  Serious: Yes (Hospitalization, Other)
  Sender: FDA-Public Use
  Company Number: None

PATIENT
  Age: 62 Year
  Sex: Female
  Weight: 63.5 kg

DRUGS (1)
  1. LITHIUM CITRATE [Suspect]
     Dosage: LIQUID 100 MG PO DAILY 1 DOSE GIVEN
     Route: 048

REACTIONS (1)
  - MEDICATION ERROR [None]
